FAERS Safety Report 8309471-1 (Version None)
Quarter: 2012Q2

REPORT INFORMATION
  Report Type: 
  Country: None (occurrence: None)
  Receive Date: 20120420
  Receipt Date: 20120409
  Transmission Date: 20120825
  Serious: Yes (Other)
  Sender: FDA-Public Use
  Company Number: DSU-2012-02809

PATIENT
  Age: 50 Year
  Sex: Female
  Weight: 68.0396 kg

DRUGS (2)
  1. AZOR [Suspect]
     Indication: HYPERTENSION
     Dosage: 5/20MG (QD),PER ORAL
     Route: 048
     Dates: start: 20100518, end: 20120301
  2. HORMONE REPLACEMENT (INGREDIENTS UNSPECIFIED) [Concomitant]

REACTIONS (14)
  - ASTHENIA [None]
  - ABASIA [None]
  - ALOPECIA [None]
  - MUSCLE SPASMS [None]
  - CONDUCTION DISORDER [None]
  - BONE PAIN [None]
  - HYPOAESTHESIA [None]
  - OEDEMA [None]
  - ARTHRALGIA [None]
  - PARAESTHESIA [None]
  - OEDEMA PERIPHERAL [None]
  - BACK DISORDER [None]
  - MYALGIA [None]
  - PAIN IN EXTREMITY [None]
